FAERS Safety Report 13477444 (Version 3)
Quarter: 2017Q4

REPORT INFORMATION
  Report Type: Spontaneous
  Country: DE (occurrence: DE)
  Receive Date: 20170425
  Receipt Date: 20171129
  Transmission Date: 20180320
  Serious: Yes (Hospitalization, Other)
  Sender: FDA-Public Use
  Company Number: DE-SA-2017SA013794

PATIENT
  Age: 26 Year
  Sex: Female
  Weight: 56 kg

DRUGS (16)
  1. LEMTRADA [Suspect]
     Active Substance: ALEMTUZUMAB
     Indication: RELAPSING-REMITTING MULTIPLE SCLEROSIS
     Route: 041
     Dates: start: 20161004, end: 20161008
  2. LEMTRADA [Suspect]
     Active Substance: ALEMTUZUMAB
     Indication: RELAPSING-REMITTING MULTIPLE SCLEROSIS
     Route: 041
     Dates: start: 20171012, end: 20171014
  3. LYRICA [Concomitant]
     Active Substance: PREGABALIN
     Indication: ANTIVIRAL PROPHYLAXIS
     Route: 048
  4. PARACETAMOL [Concomitant]
     Active Substance: ACETAMINOPHEN
     Dates: start: 201610
  5. PREDNISOLONE. [Concomitant]
     Active Substance: PREDNISOLONE
     Dates: start: 20161004, end: 20161008
  6. TRICLOSAN. [Concomitant]
     Active Substance: TRICLOSAN
     Indication: ANTIVIRAL PROPHYLAXIS
     Route: 003
     Dates: start: 20170216, end: 20170226
  7. PANTOZOL [Concomitant]
     Active Substance: PANTOPRAZOLE SODIUM
  8. MOVICOL [Concomitant]
     Active Substance: POLYETHYLENE GLYCOL 3350\POTASSIUM CHLORIDE\SODIUM BICARBONATE\SODIUM CHLORIDE
     Indication: CONSTIPATION
  9. VITAMIN D [Concomitant]
     Active Substance: CHOLECALCIFEROL
     Indication: MULTIPLE SCLEROSIS
     Dosage: 1000 (UNSPECIFIED UNITES).
     Route: 048
     Dates: start: 2016
  10. NOVALGIN [Concomitant]
     Active Substance: METAMIZOLE SODIUM
     Indication: ANTIVIRAL PROPHYLAXIS
     Route: 048
     Dates: start: 20170216, end: 20170226
  11. AMITRIPTYLINE [Concomitant]
     Active Substance: AMITRIPTYLINE
     Indication: ANTIVIRAL PROPHYLAXIS
     Route: 048
  12. RANITIDINE. [Concomitant]
     Active Substance: RANITIDINE
     Dates: start: 201610
  13. FENISTIL [Concomitant]
     Active Substance: DIMETHINDENE
     Route: 042
     Dates: start: 201610
  14. ACYCLOVIR. [Concomitant]
     Active Substance: ACYCLOVIR
     Dates: start: 201610
  15. PASPERTIN [Concomitant]
     Active Substance: METOCLOPRAMIDE HYDROCHLORIDE
  16. ACYCLOVIR. [Concomitant]
     Active Substance: ACYCLOVIR
     Dosage: DOSE: 200 (UNSPECIFIED UNITS)
     Route: 048
     Dates: start: 2016

REACTIONS (58)
  - Blood sodium decreased [Recovered/Resolved]
  - Hypoaesthesia [Unknown]
  - Mean cell volume decreased [Not Recovered/Not Resolved]
  - Mean cell haemoglobin decreased [Not Recovered/Not Resolved]
  - Blood thyroid stimulating hormone increased [Unknown]
  - Pain [Not Recovered/Not Resolved]
  - Suicidal ideation [Recovered/Resolved]
  - Glutamate dehydrogenase increased [Unknown]
  - Red cell distribution width increased [Not Recovered/Not Resolved]
  - Glucose urine present [Unknown]
  - Thyroxine free decreased [Unknown]
  - Neuralgia [Not Recovered/Not Resolved]
  - Eyelid oedema [Not Recovered/Not Resolved]
  - Head discomfort [Unknown]
  - Heart rate irregular [Not Recovered/Not Resolved]
  - Low density lipoprotein [Unknown]
  - Haemoglobin increased [Unknown]
  - Leukocyturia [Recovered/Resolved]
  - Ophthalmic herpes zoster [Not Recovered/Not Resolved]
  - Eyelid ptosis [Not Recovered/Not Resolved]
  - Protein urine present [Unknown]
  - Autoimmune thyroiditis [Not Recovered/Not Resolved]
  - Hair texture abnormal [Not Recovered/Not Resolved]
  - Menstrual disorder [Not Recovered/Not Resolved]
  - Paraesthesia [Unknown]
  - Pain [Unknown]
  - Folate deficiency [Unknown]
  - Blood cholesterol increased [Unknown]
  - C-reactive protein increased [Not Recovered/Not Resolved]
  - Haematocrit decreased [Unknown]
  - Infection [Unknown]
  - Rash [Not Recovered/Not Resolved]
  - Post herpetic neuralgia [Not Recovered/Not Resolved]
  - Herpes zoster [Not Recovered/Not Resolved]
  - Urticaria [Recovering/Resolving]
  - Sinusitis [Unknown]
  - Depression [Recovered/Resolved]
  - Vitamin B12 deficiency [Unknown]
  - Toothache [Unknown]
  - White blood cell count increased [Unknown]
  - Platelet count increased [Unknown]
  - Varicella virus test positive [Unknown]
  - Tri-iodothyronine free decreased [Unknown]
  - Sinus tachycardia [Unknown]
  - Blood glucose abnormal [Unknown]
  - Erythema of eyelid [Not Recovered/Not Resolved]
  - Pruritus [Not Recovered/Not Resolved]
  - Pruritus [Recovering/Resolving]
  - Headache [Unknown]
  - Toxoplasmosis [Unknown]
  - Haemoglobin decreased [Unknown]
  - Red blood cells urine positive [Unknown]
  - Hyperhidrosis [Not Recovered/Not Resolved]
  - Hypokalaemia [Unknown]
  - Pain in extremity [Recovered/Resolved]
  - Muscle spasms [Unknown]
  - Hypochromic anaemia [Unknown]
  - Photophobia [Unknown]

NARRATIVE: CASE EVENT DATE: 2016
